FAERS Safety Report 4635000-X (Version None)
Quarter: 2005Q2

REPORT INFORMATION
  Report Type: 
  Country: None (occurrence: None)
  Receive Date: 20050414
  Receipt Date: 20050218
  Transmission Date: 20051028
  Serious: Yes (Death)
  Sender: FDA-Public Use
  Company Number: 200510759FR

PATIENT
  Age: 77 Year
  Sex: Female

DRUGS (7)
  1. RIFADIN [Suspect]
     Indication: BONE INFECTION
     Dosage: DOSE: 600-0-600
     Route: 048
     Dates: start: 20050101, end: 20050317
  2. RIFADIN [Suspect]
     Indication: SURGERY
     Dosage: DOSE: 600-0-600
     Route: 048
     Dates: start: 20050101, end: 20050317
  3. CIPROFLOXACIN [Concomitant]
     Indication: BONE INFECTION
     Route: 048
     Dates: start: 20050101, end: 20050317
  4. TRAMADOL HCL [Concomitant]
  5. RIVOTRIL [Concomitant]
  6. FRAXIPARINE [Concomitant]
     Route: 058
  7. ANALGESICS [Concomitant]

REACTIONS (4)
  - CHROMATURIA [None]
  - FAECES DISCOLOURED [None]
  - NEOPLASM MALIGNANT [None]
  - URINARY TRACT INFECTION [None]
